FAERS Safety Report 12144221 (Version 3)
Quarter: 2016Q1

REPORT INFORMATION
  Report Type: Spontaneous
  Country: US (occurrence: US)
  Receive Date: 20160304
  Receipt Date: 20160318
  Transmission Date: 20160526
  Serious: Yes (Hospitalization, Other)
  Sender: FDA-Public Use
  Company Number: US-DRREDDYS-USA/USA/16/0077386

PATIENT
  Age: 16 Year
  Sex: Male
  Weight: 72.58 kg

DRUGS (1)
  1. ZENATANE [Suspect]
     Active Substance: ISOTRETINOIN
     Indication: ACNE
     Route: 048
     Dates: start: 20151104, end: 20160223

REACTIONS (15)
  - Vasculitis [Unknown]
  - Autoimmune disorder [Unknown]
  - Gastrointestinal inflammation [Unknown]
  - Epistaxis [Unknown]
  - Rash [Not Recovered/Not Resolved]
  - Unevaluable event [Unknown]
  - Vomiting [Unknown]
  - Insomnia [Not Recovered/Not Resolved]
  - Abdominal pain upper [Recovering/Resolving]
  - Arthralgia [Not Recovered/Not Resolved]
  - Headache [Not Recovered/Not Resolved]
  - Abdominal discomfort [Not Recovered/Not Resolved]
  - Urinary retention [Unknown]
  - Drug ineffective [Unknown]
  - Product quality issue [Unknown]

NARRATIVE: CASE EVENT DATE: 201602
